FAERS Safety Report 11155017 (Version 1)
Quarter: 2015Q2

REPORT INFORMATION
  Report Type: Spontaneous
  Country: BR (occurrence: BR)
  Receive Date: 20150602
  Receipt Date: 20150602
  Transmission Date: 20150821
  Serious: Yes (Other)
  Sender: FDA-Public Use
  Company Number: BR-SA-2015SA073535

PATIENT
  Age: 59 Year
  Sex: Male
  Weight: 96 kg

DRUGS (4)
  1. LANTUS [Suspect]
     Active Substance: INSULIN GLARGINE
     Indication: TYPE 2 DIABETES MELLITUS
     Route: 065
  2. LANTUS [Suspect]
     Active Substance: INSULIN GLARGINE
     Indication: TYPE 2 DIABETES MELLITUS
     Route: 065
     Dates: start: 1995
  3. GALVUS [Concomitant]
     Active Substance: VILDAGLIPTIN
     Indication: TYPE 2 DIABETES MELLITUS
  4. APIDRA [Suspect]
     Active Substance: INSULIN GLULISINE
     Indication: TYPE 2 DIABETES MELLITUS
     Route: 065

REACTIONS (5)
  - Obesity surgery [Unknown]
  - Injection site discolouration [Recovered/Resolved]
  - Hypoglycaemia [Recovered/Resolved]
  - Tremor [Recovered/Resolved]
  - Hyperhidrosis [Recovered/Resolved]

NARRATIVE: CASE EVENT DATE: 2011
